FAERS Safety Report 5084897-0 (Version None)
Quarter: 2006Q3

REPORT INFORMATION
  Report Type: 
  Country: None (occurrence: None)
  Receive Date: 20060815
  Receipt Date: 20060731
  Transmission Date: 20061208
  Serious: Yes (Hospitalization, Other)
  Sender: FDA-Public Use
  Company Number: 2006AL002036

PATIENT
  Age: 36 Year
  Sex: Female

DRUGS (1)
  1. IBUPROFEN ORAL SUSPENSION USP, 100 MG/5 MG (RX) (ALPHARMA) [Suspect]
     Indication: HEADACHE
     Dosage: PO
     Route: 048

REACTIONS (12)
  - DERMATITIS EXFOLIATIVE GENERALISED [None]
  - EOSINOPHILIA [None]
  - FACE OEDEMA [None]
  - GRANULOMA [None]
  - LIVER FUNCTION TEST ABNORMAL [None]
  - LYMPHADENOPATHY [None]
  - MALAISE [None]
  - NEPHRITIS INTERSTITIAL [None]
  - NEUTROPHILIA [None]
  - PYREXIA [None]
  - TYPE IV HYPERSENSITIVITY REACTION [None]
  - WHITE BLOOD CELL COUNT INCREASED [None]
